FAERS Safety Report 7228067-6 (Version None)
Quarter: 2011Q1

REPORT INFORMATION
  Report Type: 
  Country: None (occurrence: None)
  Receive Date: 20110114
  Receipt Date: 20100310
  Transmission Date: 20110831
  Serious: Yes (Other)
  Sender: FDA-Public Use
  Company Number: US-PFIZER INC-2010031438

PATIENT
  Sex: Female
  Weight: 40.816 kg

DRUGS (2)
  1. CLARITHROMYCIN [Concomitant]
     Dosage: UNK
     Route: 048
  2. MYCOBUTIN [Suspect]
     Indication: MYCOBACTERIUM AVIUM COMPLEX INFECTION
     Dosage: 150 MG, 2X/DAY
     Route: 048
     Dates: start: 20090101

REACTIONS (4)
  - SKIN DISCOLOURATION [None]
  - NAUSEA [None]
  - ALOPECIA [None]
  - CHROMATURIA [None]
